FAERS Safety Report 8730379 (Version 2)
Quarter: 2012Q4

REPORT INFORMATION
  Report Type: 
  Country: JP (occurrence: JP)
  Receive Date: 20120817
  Receipt Date: 20121017
  Transmission Date: 20130627
  Serious: Yes (Life-Threatening)
  Sender: FDA-Public Use
  Company Number: PHHY2012JP070711

PATIENT
  Age: 55 Year
  Sex: Male
  Weight: 69 kg

DRUGS (4)
  1. FOLINIC ACID [Suspect]
     Indication: RECTAL CANCER
     Dosage: 200 mg/m2, UNK
  2. FLUOROURACIL [Suspect]
     Indication: RECTAL CANCER
     Dosage: 400 mg/m2, bolus dose
  3. FLUOROURACIL [Suspect]
     Dosage: 2400 mg/m2, UNK
  4. OXALIPLATIN [Suspect]
     Indication: RECTAL CANCER
     Dosage: 85 mg/m2, UNK

REACTIONS (3)
  - Bone marrow failure [Unknown]
  - Granulocytopenia [Unknown]
  - Leukopenia [Unknown]
